FAERS Safety Report 7525726-2 (Version None)
Quarter: 2011Q2

REPORT INFORMATION
  Report Type: 
  Country: None (occurrence: None)
  Receive Date: 20110606
  Receipt Date: 20110601
  Transmission Date: 20111010
  Serious: Yes (Death)
  Sender: FDA-Public Use
  Company Number: PHHY2011TR39902

PATIENT
  Age: 45 Year
  Sex: Female

DRUGS (1)
  1. DICLOFENAC SODIUM [Suspect]
     Indication: POSTOPERATIVE ANALGESIA
     Dosage: 75 MG, UNK
     Route: 030

REACTIONS (11)
  - RESPIRATORY DISTRESS [None]
  - LARYNGEAL OEDEMA [None]
  - RASH [None]
  - SEPSIS [None]
  - HYPOXIC-ISCHAEMIC ENCEPHALOPATHY [None]
  - CEREBELLAR ISCHAEMIA [None]
  - CARDIO-RESPIRATORY ARREST [None]
  - ANAPHYLACTIC REACTION [None]
  - PRURITUS [None]
  - COMA [None]
  - BRAIN OEDEMA [None]
